FAERS Safety Report 4421066-9 (Version None)
Quarter: 2004Q3

REPORT INFORMATION
  Report Type: 
  Country: None (occurrence: None)
  Receive Date: 20040809
  Receipt Date: 20040729
  Transmission Date: 20050211
  Serious: Yes (Hospitalization)
  Sender: FDA-Public Use
  Company Number: JP-MERCK-0408USA00175

PATIENT
  Age: 85 Year
  Sex: Female

DRUGS (3)
  1. BROACT [Suspect]
     Indication: BRONCHITIS ACUTE
     Route: 042
     Dates: start: 20040702, end: 20040708
  2. PRIMAXIN [Suspect]
     Indication: BRONCHITIS ACUTE
     Route: 041
     Dates: start: 20040709, end: 20040709
  3. PRIMAXIN [Suspect]
     Route: 041
     Dates: start: 20040628, end: 20040701

REACTIONS (1)
  - GRANULOCYTE COUNT DECREASED [None]
